FAERS Safety Report 9062868 (Version 2)
Quarter: 2013Q1

REPORT INFORMATION
  Report Type: Spontaneous
  Country: CH (occurrence: CH)
  Receive Date: 20130213
  Receipt Date: 20130319
  Transmission Date: 20140127
  Serious: Yes (Life-Threatening, Other)
  Sender: FDA-Public Use
  Company Number: CH-TEVA-384544ISR

PATIENT
  Age: 58 Year
  Sex: Female
  Weight: 72 kg

DRUGS (4)
  1. CARBOPLATIN TEVA 450 MG [Suspect]
     Indication: COLON CANCER
     Dosage: 850 MG IN 500 ML NACL 0.9 PERCENT
     Route: 042
     Dates: start: 20120903, end: 20130102
  2. ZOFRAN [Concomitant]
     Indication: ANTIEMETIC SUPPORTIVE CARE
     Route: 048
  3. FORTECORTIN [Concomitant]
     Route: 048
  4. XYZAL [Concomitant]
     Route: 048

REACTIONS (5)
  - Hypersensitivity [Recovered/Resolved]
  - Bronchospasm [Recovered/Resolved]
  - Hypotension [Recovered/Resolved]
  - Tachycardia [Recovered/Resolved]
  - Dyspnoea [Recovered/Resolved]
